FAERS Safety Report 9138692 (Version 1)
Quarter: 2013Q1

REPORT INFORMATION
  Report Type: Spontaneous
  Country: BE (occurrence: BE)
  Receive Date: 20130305
  Receipt Date: 20130305
  Transmission Date: 20140127
  Serious: Yes (Other)
  Sender: FDA-Public Use
  Company Number: BE-ABBOTT-13P-013-1051848-00

PATIENT
  Sex: Male

DRUGS (3)
  1. HUMIRA [Suspect]
     Indication: PSORIASIS
     Route: 058
     Dates: start: 200811, end: 200909
  2. HUMIRA [Suspect]
     Route: 058
     Dates: start: 201102, end: 20121213
  3. HUMIRA [Suspect]
     Route: 058
     Dates: start: 201302

REACTIONS (5)
  - Stress [Recovered/Resolved]
  - Loss of consciousness [Unknown]
  - Muscular weakness [Unknown]
  - Syncope [Recovered/Resolved]
  - Apnoea [Recovered/Resolved]
